FAERS Safety Report 7548464-9 (Version None)
Quarter: 2011Q2

REPORT INFORMATION
  Report Type: 
  Country: None (occurrence: None)
  Receive Date: 20110615
  Receipt Date: 20110526
  Transmission Date: 20111010
  Serious: Yes (Hospitalization)
  Sender: FDA-Public Use
  Company Number: US-BAYER-201038269NA

PATIENT
  Sex: Female
  Weight: 111.11 kg

DRUGS (18)
  1. GLUCOPHAGE [Concomitant]
     Route: 048
  2. LISINOPRIL [Concomitant]
  3. OXYCODONE HCL [Concomitant]
     Indication: MULTIPLE SCLEROSIS
  4. XANAX [Concomitant]
     Route: 048
  5. FLEXERIL [Concomitant]
  6. GABAPENTIN [Concomitant]
     Route: 048
  7. VICODIN [Concomitant]
     Indication: MULTIPLE SCLEROSIS
  8. NEXIUM [Concomitant]
  9. YAZ [Suspect]
     Indication: ACNE
     Route: 048
  10. YASMIN [Suspect]
     Indication: ACNE
     Dosage: UNK
     Route: 048
     Dates: start: 20050101, end: 20060101
  11. REBIF [Concomitant]
     Indication: MULTIPLE SCLEROSIS
     Route: 048
  12. OXYCONTIN [Concomitant]
     Route: 048
  13. DROSPIRENONE AND ETHINYL ESTRADIOL [Suspect]
  14. TRINESSA [Concomitant]
     Dosage: UNK
     Dates: start: 20060301, end: 20060601
  15. LEVOTHYROXINE SODIUM [Concomitant]
     Indication: THYROID DISORDER
     Route: 048
  16. ORTHO CYCLEN-28 [Concomitant]
     Dosage: UNK
     Dates: start: 20060601, end: 20060601
  17. PARASTATIN [Concomitant]
     Indication: DIABETES MELLITUS
  18. METFORMIN HCL [Concomitant]
     Indication: DIABETES MELLITUS

REACTIONS (3)
  - THROMBOSIS [None]
  - DEEP VEIN THROMBOSIS [None]
  - OEDEMA PERIPHERAL [None]
